FAERS Safety Report 5259353-7 (Version None)
Quarter: 2007Q1

REPORT INFORMATION
  Report Type: 
  Country: None (occurrence: None)
  Receive Date: 20070305
  Receipt Date: 20070219
  Transmission Date: 20070707
  Serious: Yes (Other)
  Sender: FDA-Public Use
  Company Number: PHBS2007IL02442

PATIENT
  Age: 75 Year
  Sex: Female

DRUGS (1)
  1. VISUDYNE [Suspect]
     Indication: HAEMANGIOMA OF RETINA

REACTIONS (1)
  - CHOROIDAL NEOVASCULARISATION [None]
